FAERS Safety Report 4990124-2 (Version None)
Quarter: 2006Q2

REPORT INFORMATION
  Report Type: 
  Country: None (occurrence: None)
  Receive Date: 20060503
  Receipt Date: 20050930
  Transmission Date: 20061013
  Serious: Yes (Hospitalization, Other)
  Sender: FDA-Public Use
  Company Number: US-MERCK-0510USA02026

PATIENT
  Age: 76 Year
  Sex: Female
  Weight: 82 kg

DRUGS (15)
  1. VIOXX [Suspect]
     Indication: OSTEOARTHRITIS
     Route: 048
     Dates: start: 19991220, end: 20040901
  2. VIOXX [Suspect]
     Indication: PAIN
     Route: 048
     Dates: start: 19991220, end: 20040901
  3. GEMFIBROZIL [Concomitant]
     Indication: BLOOD CHOLESTEROL
     Route: 065
  4. ZIAC [Concomitant]
     Route: 048
  5. VERAPAMIL [Concomitant]
     Indication: HYPERTENSION
     Route: 048
  6. RESTORIL [Concomitant]
     Indication: INSOMNIA
     Route: 048
  7. LEVOXYL [Concomitant]
     Indication: HYPERTHYROIDISM
     Route: 065
     Dates: start: 19980101
  8. [THERAPY UNSPECIFIED] [Concomitant]
     Indication: MUSCLE SPASMS
     Route: 065
  9. PREMARIN [Concomitant]
     Indication: HYSTERECTOMY
     Route: 048
     Dates: start: 19690101
  10. SYNTHROID [Concomitant]
     Indication: HYPERTHYROIDISM
     Route: 048
     Dates: start: 19980101
  11. TYLENOL (CAPLET) [Concomitant]
     Indication: PAIN
     Route: 065
  12. LASIX [Concomitant]
     Route: 065
  13. ASPIRIN [Concomitant]
     Route: 065
     Dates: start: 20040101
  14. VIOXX [Suspect]
     Route: 048
     Dates: start: 19991220, end: 20040901
  15. VIOXX [Suspect]
     Route: 048
     Dates: start: 19991220, end: 20040901

REACTIONS (25)
  - ACUTE MYOCARDIAL INFARCTION [None]
  - ANGINA PECTORIS [None]
  - ARTERIOSCLEROSIS CORONARY ARTERY [None]
  - CARDIAC FAILURE CONGESTIVE [None]
  - CAROTID ARTERY STENOSIS [None]
  - CEREBROVASCULAR ACCIDENT [None]
  - CHEST PAIN [None]
  - CORONARY ARTERY DISEASE [None]
  - CORONARY ARTERY OCCLUSION [None]
  - DIZZINESS [None]
  - DYSPNOEA [None]
  - DYSPNOEA EXERTIONAL [None]
  - EJECTION FRACTION DECREASED [None]
  - GRAVITATIONAL OEDEMA [None]
  - HYPERLIPIDAEMIA [None]
  - HYPERTENSION [None]
  - HYPOKINESIA [None]
  - NEPHROLITHIASIS [None]
  - NOCTURIA [None]
  - OEDEMA PERIPHERAL [None]
  - RENAL ARTERY STENOSIS [None]
  - RENAL FAILURE [None]
  - TRANSIENT ISCHAEMIC ATTACK [None]
  - VENTRICULAR DYSFUNCTION [None]
  - VENTRICULAR HYPERTROPHY [None]
